FAERS Safety Report 17470042 (Version 1)
Quarter: 2020Q1

REPORT INFORMATION
  Report Type: Spontaneous
  Country: DE (occurrence: DE)
  Receive Date: 20200227
  Receipt Date: 20200227
  Transmission Date: 20200409
  Serious: Yes (Other)
  Sender: FDA-Public Use
  Company Number: DE-JNJFOC-20200232686

PATIENT
  Sex: Female
  Weight: 67 kg

DRUGS (1)
  1. STELARA [Suspect]
     Active Substance: USTEKINUMAB
     Indication: PRODUCT USED FOR UNKNOWN INDICATION
     Route: 058
     Dates: start: 20191027

REACTIONS (2)
  - Haematochezia [Unknown]
  - Back pain [Unknown]

NARRATIVE: CASE EVENT DATE: 20191101
